FAERS Safety Report 4505130-1 (Version None)
Quarter: 2004Q4

REPORT INFORMATION
  Report Type: 
  Country: None (occurrence: None)
  Receive Date: 20041013
  Receipt Date: 20040227
  Transmission Date: 20050328
  Serious: Yes (Hospitalization)
  Sender: FDA-Public Use
  Company Number: DCC 04-005

PATIENT
  Age: 8 Year
  Sex: Female
  Weight: 29.0302 kg

DRUGS (1)
  1. BACLOFEN [Suspect]
     Indication: LEUKODYSTROPHY
     Dosage: ORAL
     Route: 048

REACTIONS (1)
  - DRUG WITHDRAWAL SYNDROME [None]
